FAERS Safety Report 5840249-4 (Version None)
Quarter: 2008Q3

REPORT INFORMATION
  Report Type: 
  Country: None (occurrence: None)
  Receive Date: 20080730
  Receipt Date: 20080507
  Transmission Date: 20090109
  Serious: No
  Sender: FDA-Public Use
  Company Number: 2008-US-000304

PATIENT
  Age: 12 Year
  Sex: Female
  Weight: 46.7 kg

DRUGS (4)
  1. INCRELEX [Suspect]
     Dosage: 44 UG, SUBCUTANEOUS ; 40 UG, BID, SUBCUTANEOUS
     Route: 058
     Dates: start: 20080228, end: 20080417
  2. INCRELEX [Suspect]
     Dosage: 44 UG, SUBCUTANEOUS ; 40 UG, BID, SUBCUTANEOUS
     Route: 058
     Dates: start: 20080418, end: 20080418
  3. LUPRON [Concomitant]
  4. HUMAN GROWTH HORMONE, RECOMBINANT (SOMATROPIN) [Concomitant]

REACTIONS (5)
  - AGITATION [None]
  - HOT FLUSH [None]
  - IRRITABILITY [None]
  - LIP SWELLING [None]
  - OEDEMA PERIPHERAL [None]
